FAERS Safety Report 23765172 (Version 2)
Quarter: 2024Q2

REPORT INFORMATION
  Report Type: Spontaneous
  Country: PL (occurrence: PL)
  Receive Date: 20240420
  Receipt Date: 20240619
  Transmission Date: 20240716
  Serious: Yes (Hospitalization, Other)
  Sender: FDA-Public Use
  Company Number: PL-Accord-418958

PATIENT
  Age: 75 Year
  Sex: Female

DRUGS (1)
  1. METHOTREXATE [Suspect]
     Active Substance: METHOTREXATE
     Indication: Rheumatoid arthritis
     Dosage: 15 MILLIGRAMS, QW?INJECTION
     Route: 058

REACTIONS (3)
  - Erysipelas [Recovered/Resolved]
  - Disease recurrence [Recovered/Resolved]
  - Infection in an immunocompromised host [Recovering/Resolving]
